FAERS Safety Report 8357900-X (Version None)
Quarter: 2012Q2

REPORT INFORMATION
  Report Type: 
  Country: None (occurrence: None)
  Receive Date: 20120514
  Receipt Date: 20120508
  Transmission Date: 20120825
  Serious: Yes (Life-Threatening, Hospitalization, Other)
  Sender: FDA-Public Use
  Company Number: DE-CELGENEUS-062-21880-12031991

PATIENT
  Age: 71 Year
  Sex: Male
  Weight: 66.5 kg

DRUGS (14)
  1. PHENPROCOUMON [Suspect]
     Route: 065
  2. ZOLIM [Concomitant]
     Route: 065
  3. DECOSTRIOL [Concomitant]
     Route: 065
  4. ALLOPURINOL [Concomitant]
     Route: 065
  5. SIMVASTATIN [Concomitant]
     Dosage: 20 MILLIGRAM
     Route: 065
  6. BISOPROLOL FUMARATE [Concomitant]
     Dosage: 4 CAPSULE
     Route: 065
  7. LEVOTHYROXINE SODIUM [Concomitant]
     Route: 065
  8. KALINOR RETARD [Concomitant]
     Route: 065
  9. REVLIMID [Suspect]
     Indication: MULTIPLE MYELOMA
     Dosage: 10 MILLIGRAM
     Route: 048
     Dates: start: 20120210, end: 20120223
  10. DEXAMETHASONE [Suspect]
     Indication: MULTIPLE MYELOMA
     Route: 065
     Dates: start: 20100210, end: 20120223
  11. ACYCLOVIR [Concomitant]
     Dosage: 1 CAPSULE
     Route: 065
  12. PANTOPRAZOLE [Concomitant]
     Dosage: 40 MILLIGRAM
     Route: 065
  13. TORSEMIDE [Concomitant]
     Dosage: 20 MILLIGRAM
     Route: 065
  14. COTRIM [Concomitant]
     Route: 065

REACTIONS (9)
  - EPISTAXIS [None]
  - ANAEMIA [None]
  - DIABETES MELLITUS [None]
  - BLOOD CREATININE INCREASED [None]
  - HEPATOTOXICITY [None]
  - DEHYDRATION [None]
  - GENERAL PHYSICAL HEALTH DETERIORATION [None]
  - COAGULATION TEST ABNORMAL [None]
  - ARRHYTHMIA [None]
